FAERS Safety Report 4376021-4 (Version None)
Quarter: 2004Q2

REPORT INFORMATION
  Report Type: 
  Country: None (occurrence: None)
  Receive Date: 20040607
  Receipt Date: 20040527
  Transmission Date: 20050107
  Serious: Yes (Hospitalization)
  Sender: FDA-Public Use
  Company Number: 2004215847NO

PATIENT

DRUGS (1)
  1. ZYVOX [Suspect]

REACTIONS (1)
  - HEPATIC FAILURE [None]
